FAERS Safety Report 17852230 (Version 1)
Quarter: 2020Q2

REPORT INFORMATION
  Report Type: Spontaneous
  Country: US (occurrence: US)
  Receive Date: 20200602
  Receipt Date: 20200602
  Transmission Date: 20200714
  Serious: Yes (Hospitalization)
  Sender: FDA-Public Use
  Company Number: US-TEVA-2020-US-1242119

PATIENT
  Age: 30 Year
  Sex: Male

DRUGS (8)
  1. ACTIVATED CHARCOAL. [Suspect]
     Active Substance: ACTIVATED CHARCOAL
     Indication: GASTRIC LAVAGE
     Dosage: ADMINISTERED ALONG WITH SORBITOL
     Route: 048
  2. KAYEXALATE [Suspect]
     Active Substance: SODIUM POLYSTYRENE SULFONATE
     Indication: BLOOD POTASSIUM INCREASED
     Dosage: ADMINISTERED WITH SORBITOL
     Route: 048
  3. SERTRALINE [Suspect]
     Active Substance: SERTRALINE HYDROCHLORIDE
     Indication: SUICIDE ATTEMPT
     Dosage: PILLS
     Route: 048
  4. NICARDIPINE [Concomitant]
     Active Substance: NICARDIPINE
     Indication: BLOOD PRESSURE INCREASED
     Route: 050
  5. SORBITOL. [Suspect]
     Active Substance: SORBITOL
     Indication: PROPHYLAXIS
     Route: 048
  6. ZALEPLON. [Suspect]
     Active Substance: ZALEPLON
     Indication: INTENTIONAL OVERDOSE
  7. SERTRALINE [Suspect]
     Active Substance: SERTRALINE HYDROCHLORIDE
     Indication: INTENTIONAL OVERDOSE
  8. ZALEPLON. [Suspect]
     Active Substance: ZALEPLON
     Indication: SUICIDE ATTEMPT
     Dosage: PILLS
     Route: 048

REACTIONS (7)
  - Respiratory rate increased [Unknown]
  - Blood pressure increased [Unknown]
  - Intentional overdose [Unknown]
  - Suicide attempt [Unknown]
  - Hyperkalaemia [Unknown]
  - Somnolence [Unknown]
  - Gastrointestinal necrosis [Unknown]
